FAERS Safety Report 13034055 (Version 1)
Quarter: 2016Q4

REPORT INFORMATION
  Report Type: Spontaneous
  Country: US (occurrence: US)
  Receive Date: 20161216
  Receipt Date: 20161216
  Transmission Date: 20170207
  Serious: Yes (Other)
  Sender: FDA-Public Use
  Company Number: None

PATIENT
  Age: 73 Year
  Sex: Female
  Weight: 77.18 kg

DRUGS (4)
  1. AMLOIIPINE-BENZAPRIL [Concomitant]
  2. PROBIOTIC TRUNATURE [Concomitant]
  3. SIMVASTATIN. [Concomitant]
     Active Substance: SIMVASTATIN
  4. ZITHRANOL [Suspect]
     Active Substance: ANTHRALIN
     Indication: PSORIASIS
     Dosage: 85G 1 APPLN/2ND DAY TOPICAL
     Route: 061
     Dates: start: 20161105, end: 20161209

REACTIONS (1)
  - Inflammation [None]

NARRATIVE: CASE EVENT DATE: 20161210
